FAERS Safety Report 17328048 (Version 1)
Quarter: 2020Q1

REPORT INFORMATION
  Report Type: Spontaneous
  Country: US (occurrence: US)
  Receive Date: 20200127
  Receipt Date: 20200127
  Transmission Date: 20200409
  Serious: No
  Sender: FDA-Public Use
  Company Number: US-BAYER-2020-007111

PATIENT
  Age: 84 Year
  Sex: Male

DRUGS (9)
  1. ACETYLSALICYLIC ACID [Suspect]
     Active Substance: ASPIRIN
     Dosage: 81 MG, QD
     Dates: start: 2015
  2. DONEPEZIL. [Concomitant]
     Active Substance: DONEPEZIL
     Indication: DEMENTIA ALZHEIMER^S TYPE
     Dosage: 10 MG, QD
     Dates: start: 201501
  3. AZELASTINE. [Suspect]
     Active Substance: AZELASTINE HYDROCHLORIDE
     Indication: RHINORRHOEA
     Dosage: ONE SPRAY IN EACH NOSTIL, ONCE
     Dates: start: 201605
  4. MEMANTINE. [Concomitant]
     Active Substance: MEMANTINE
     Indication: DEMENTIA ALZHEIMER^S TYPE
     Dosage: 10 MG, BID
     Dates: start: 2015
  5. HYDROCHLOROTHIAZIDE. [Concomitant]
     Active Substance: HYDROCHLOROTHIAZIDE
     Dosage: 25 MG, QD
     Dates: start: 2015
  6. SIMVASTATIN. [Concomitant]
     Active Substance: SIMVASTATIN
     Dosage: 10 MG, QD
     Dates: start: 2015
  7. LORATADINE. [Suspect]
     Active Substance: LORATADINE
     Indication: RHINORRHOEA
     Dosage: 10 MG, QD
     Dates: start: 2016
  8. POTASSIUM CHLORIDE. [Concomitant]
     Active Substance: POTASSIUM CHLORIDE
     Dosage: 8 MEQ, QD
     Dates: start: 2015
  9. SERTRALINE [Concomitant]
     Active Substance: SERTRALINE HYDROCHLORIDE
     Indication: ANXIETY
     Dosage: 25 MG, QD

REACTIONS (2)
  - Drug ineffective [None]
  - Epistaxis [None]

NARRATIVE: CASE EVENT DATE: 2016
